FAERS Safety Report 4652945-5 (Version None)
Quarter: 2005Q2

REPORT INFORMATION
  Report Type: 
  Country: None (occurrence: None)
  Receive Date: 20050503
  Receipt Date: 20050503
  Transmission Date: 20051028
  Serious: Yes (Other)
  Sender: FDA-Public Use
  Company Number: MC200500378

PATIENT
  Age: 59 Year
  Sex: Male

DRUGS (4)
  1. ANGIOMAX [Suspect]
     Indication: ARTERIAL DISORDER
     Dosage: SEE IMAGE
     Route: 040
     Dates: start: 20050414, end: 20050414
  2. ANGIOMAX [Suspect]
     Indication: ARTERIAL DISORDER
     Dosage: SEE IMAGE
     Route: 040
     Dates: start: 20050414, end: 20050414
  3. PLAVIX [Concomitant]
  4. ACETYLSALICYLIC ACID SRT [Concomitant]

REACTIONS (1)
  - FEMORAL ARTERY DISSECTION [None]
